FAERS Safety Report 6153806-5 (Version None)
Quarter: 2009Q2

REPORT INFORMATION
  Report Type: 
  Country: None (occurrence: None)
  Receive Date: 20090414
  Receipt Date: 20070405
  Transmission Date: 20091009
  Serious: Yes (Hospitalization, Other)
  Sender: FDA-Public Use
  Company Number: US-ASTRAZENECA-2006UW10838

PATIENT
  Age: 19484 Day
  Sex: Female
  Weight: 63.5 kg

DRUGS (8)
  1. SEROQUEL [Suspect]
     Indication: SCHIZOPHRENIA
     Dosage: 25-600 MG
     Route: 048
     Dates: start: 20050105
  2. HALDOL [Concomitant]
  3. LIPITOR [Concomitant]
  4. GLUCOTROL XL [Concomitant]
  5. AVANDIA [Concomitant]
  6. ZESTRIL [Concomitant]
  7. LANTUS [Concomitant]
  8. DEPAKOTE ER [Concomitant]

REACTIONS (13)
  - BRONCHITIS [None]
  - CEREBROVASCULAR ACCIDENT [None]
  - DIABETES MELLITUS [None]
  - DIABETIC COMA [None]
  - DIABETIC KETOACIDOSIS [None]
  - HYPOALBUMINAEMIA [None]
  - HYPONATRAEMIA [None]
  - IRON DEFICIENCY ANAEMIA [None]
  - LOCALISED OEDEMA [None]
  - MUSCULAR WEAKNESS [None]
  - RENAL FAILURE ACUTE [None]
  - SCIATICA [None]
  - THROMBOCYTOPENIA [None]
